FAERS Safety Report 16899452 (Version 2)
Quarter: 2019Q4

REPORT INFORMATION
  Report Type: Spontaneous
  Country: GB (occurrence: GB)
  Receive Date: 20191009
  Receipt Date: 20191121
  Transmission Date: 20200122
  Serious: Yes (Other)
  Sender: FDA-Public Use
  Company Number: GB-PFIZER INC-2019427648

PATIENT
  Age: 38 Year
  Sex: Female

DRUGS (1)
  1. SOMAVERT [Suspect]
     Active Substance: PEGVISOMANT
     Indication: HORMONE LEVEL ABNORMAL
     Dosage: 10 MG, UNK

REACTIONS (4)
  - Insulin-like growth factor increased [Unknown]
  - General physical health deterioration [Unknown]
  - Product complaint [Unknown]
  - Wrong technique in product usage process [Unknown]
